FAERS Safety Report 8890513 (Version 1)
Quarter: 2012Q4

REPORT INFORMATION
  Report Type: 
  Country: US (occurrence: US)
  Receive Date: 20121107
  Receipt Date: 20121107
  Transmission Date: 20130627
  Serious: Yes (Other)
  Sender: FDA-Public Use
  Company Number: PHEH2012US021775

PATIENT
  Age: 63 Year
  Sex: Male

DRUGS (23)
  1. TEKTURNA [Suspect]
     Indication: BLOOD PRESSURE
     Dosage: UNK UKN, UNK
  2. HUMIRA [Suspect]
     Indication: CROHN^S DISEASE
     Dosage: 160 mg, daily
     Dates: start: 20120607, end: 20120607
  3. HUMIRA [Suspect]
     Dosage: 80 mg, UNK
     Dates: start: 20120622, end: 20120622
  4. HUMIRA [Suspect]
     Dosage: 40 mg, QW2
  5. ANTIHYPERTENSIVE DRUGS [Suspect]
  6. PREDNISONE [Concomitant]
     Dosage: 20 mg, daily
  7. CLONIDINE [Concomitant]
     Indication: HYPERTENSION
     Dosage: 0.2 mg, QW
     Route: 062
  8. VICODIN [Concomitant]
     Indication: PAIN
     Dosage: 750 mg (As required)
  9. SOMA [Concomitant]
     Indication: BACK PAIN
     Dosage: 250 mg, BID
  10. LOTREL [Concomitant]
     Indication: HYPERTENSION
     Dosage: 40 mg, daily
  11. TRILIPIX [Concomitant]
     Indication: BLOOD CHOLESTEROL INCREASED
  12. XANAX [Concomitant]
     Indication: DEPRESSION
     Dosage: 0.5 DF, BID
  13. XANAX [Concomitant]
     Indication: ANXIETY
  14. XANAX [Concomitant]
     Indication: PANIC ATTACK
  15. SEROQUEL [Concomitant]
     Indication: INSOMNIA
     Dosage: 200 mg, daily
  16. WELCHOL [Concomitant]
     Indication: DIARRHOEA
     Dosage: 625 mg, as required
  17. WELLBUTRIN [Concomitant]
     Indication: DEPRESSION
     Dosage: 300 mg, daily
  18. OMEPRAZOLE [Concomitant]
     Indication: ABDOMINAL DISCOMFORT
     Dosage: 40 mg, daily
  19. LOVASTATIN [Concomitant]
     Indication: HYPERTENSION
     Dosage: 10 mg, daily
  20. LOPRESSOR [Concomitant]
     Indication: HYPERTENSION
     Dosage: 1 DF, BID
  21. ZOLOFT [Concomitant]
     Indication: DEPRESSION
     Dosage: 100 mg, daily
  22. ASACOL [Concomitant]
     Indication: CROHN^S DISEASE
     Dosage: 800 mg, daily
  23. BENICAR [Concomitant]
     Indication: HYPERTENSION
     Dates: start: 201209

REACTIONS (13)
  - Skin cancer [Unknown]
  - Blood blister [Unknown]
  - Pruritus [Unknown]
  - Injection site bruising [Unknown]
  - Decreased appetite [Unknown]
  - Weight decreased [Unknown]
  - Drug hypersensitivity [Unknown]
  - Incision site erythema [Unknown]
  - Injection site pain [Unknown]
  - Renal impairment [Unknown]
  - Hypertension [Unknown]
  - Oedema peripheral [Unknown]
  - Rash [Unknown]
